FAERS Safety Report 6894998-X (Version None)
Quarter: 2010Q3

REPORT INFORMATION
  Report Type: 
  Country: None (occurrence: None)
  Receive Date: 20100730
  Receipt Date: 20100730
  Transmission Date: 20110219
  Serious: Yes (Other)
  Sender: FDA-Public Use
  Company Number: None

PATIENT
  Age: 68 Year
  Sex: Female
  Weight: 61.2356 kg

DRUGS (1)
  1. TRIFLURIDINE [Suspect]
     Indication: HERPES SIMPLEX
     Dosage: 1 DROP EVERY 2 HOURS WHILE WAKE EYE
     Dates: start: 20100315, end: 20100410

REACTIONS (14)
  - ABDOMINAL DISCOMFORT [None]
  - ABDOMINAL PAIN UPPER [None]
  - ABNORMAL SENSATION IN EYE [None]
  - APPLICATION SITE PAIN [None]
  - ASTHENIA [None]
  - DIARRHOEA [None]
  - DIZZINESS [None]
  - EYELID OEDEMA [None]
  - INSOMNIA [None]
  - PAIN [None]
  - PHOTOPHOBIA [None]
  - PRODUCT CONTAINER ISSUE [None]
  - RASH [None]
  - SWELLING FACE [None]
